FAERS Safety Report 5261830-X (Version None)
Quarter: 2007Q1

REPORT INFORMATION
  Report Type: 
  Country: None (occurrence: None)
  Receive Date: 20070310
  Receipt Date: 20070227
  Transmission Date: 20070707
  Serious: Yes (Other)
  Sender: FDA-Public Use
  Company Number: PHNU2007DE01017

PATIENT
  Age: 81 Year
  Sex: Male

DRUGS (1)
  1. ZOMETA [Suspect]
     Indication: METASTASES TO BONE
     Dosage: 4 MG, QMO
     Route: 042
     Dates: start: 20040101

REACTIONS (6)
  - BIOPSY SITE UNSPECIFIED ABNORMAL [None]
  - BONE DISORDER [None]
  - DENTAL TREATMENT [None]
  - OSTEONECROSIS [None]
  - TOOTHACHE [None]
  - X-RAY ABNORMAL [None]
